FAERS Safety Report 4807164-6 (Version None)
Quarter: 2005Q4

REPORT INFORMATION
  Report Type: 
  Country: None (occurrence: None)
  Receive Date: 20051020
  Receipt Date: 20051007
  Transmission Date: 20060501
  Serious: Yes (Other)
  Sender: FDA-Public Use
  Company Number: SP-2005-002560

PATIENT
  Age: 47 Year
  Sex: Male

DRUGS (1)
  1. IXIA 40 [Suspect]
     Indication: HYPERTENSION
     Dosage: 40 MG QD PO
     Route: 048
     Dates: start: 20050301, end: 20050515

REACTIONS (2)
  - GOUT [None]
  - HYPERURICAEMIA [None]
